FAERS Safety Report 13980945 (Version 1)
Quarter: 2017Q3

REPORT INFORMATION
  Report Type: Spontaneous
  Country: US (occurrence: US)
  Receive Date: 20170918
  Receipt Date: 20170918
  Transmission Date: 20171128
  Serious: No
  Sender: FDA-Public Use
  Company Number: US-TEVA-737795ACC

PATIENT
  Age: 84 Year
  Sex: Female
  Weight: 71.65 kg

DRUGS (8)
  1. FEXOFENADINE [Suspect]
     Active Substance: FEXOFENADINE\FEXOFENADINE HYDROCHLORIDE
     Dosage: 360 MILLIGRAM DAILY;
     Route: 048
     Dates: start: 20161201, end: 20161201
  2. BISOPROLOL [Concomitant]
     Active Substance: BISOPROLOL
  3. OXYBUTYNIN [Concomitant]
     Active Substance: OXYBUTYNIN
  4. ROSUVASTATIN. [Concomitant]
     Active Substance: ROSUVASTATIN
  5. FEXOFENADINE [Suspect]
     Active Substance: FEXOFENADINE\FEXOFENADINE HYDROCHLORIDE
     Indication: SEASONAL ALLERGY
     Dosage: QD PRN
     Route: 048
     Dates: start: 2014
  6. RAMIPRIL. [Concomitant]
     Active Substance: RAMIPRIL
  7. IBUPROFEN. [Concomitant]
     Active Substance: IBUPROFEN
  8. COQ10 [Concomitant]
     Active Substance: UBIDECARENONE

REACTIONS (2)
  - Incorrect dose administered [Unknown]
  - Drug administered to patient of inappropriate age [Unknown]

NARRATIVE: CASE EVENT DATE: 20161201
